FAERS Safety Report 16230101 (Version 2)
Quarter: 2019Q2

REPORT INFORMATION
  Report Type: Spontaneous
  Country: FR (occurrence: FR)
  Receive Date: 20190423
  Receipt Date: 20190626
  Transmission Date: 20190711
  Serious: Yes (Hospitalization)
  Sender: FDA-Public Use
  Company Number: FR-BIOGEN-2019BI00728165

PATIENT
  Age: 60 Year
  Sex: Male

DRUGS (1)
  1. AVONEX [Suspect]
     Active Substance: INTERFERON BETA-1A
     Indication: MULTIPLE SCLEROSIS
     Route: 065
     Dates: start: 200403

REACTIONS (4)
  - Urinary tract infection staphylococcal [Unknown]
  - Multiple sclerosis relapse [Unknown]
  - Paraparesis [Unknown]
  - Umbilical hernia [Unknown]

NARRATIVE: CASE EVENT DATE: 200406
